FAERS Safety Report 8625686-7 (Version None)
Quarter: 2012Q3

REPORT INFORMATION
  Report Type: 
  Country: None (occurrence: None)
  Receive Date: 20120827
  Receipt Date: 20120821
  Transmission Date: 20120928
  Serious: Yes (Hospitalization)
  Sender: FDA-Public Use
  Company Number: GB-ROCHE-1105640

PATIENT
  Sex: Female

DRUGS (3)
  1. MABTHERA [Suspect]
     Indication: RHEUMATOID ARTHRITIS
     Dosage: LAST DOSE PRIOR TO SAE WAS  TAKEN ON 29/SEP/2009
     Dates: start: 20080401
  2. LEFLUNOMIDE [Concomitant]
  3. METHOTREXATE [Concomitant]
     Route: 048

REACTIONS (1)
  - GASTRIC CANCER [None]
